FAERS Safety Report 18499748 (Version 1)
Quarter: 2020Q4

REPORT INFORMATION
  Report Type: Spontaneous
  Country: GR (occurrence: GR)
  Receive Date: 20201113
  Receipt Date: 20201113
  Transmission Date: 20210114
  Serious: Yes (Other)
  Sender: FDA-Public Use
  Company Number: GR-JNJFOC-20201018120

PATIENT
  Age: 29 Year
  Sex: Male

DRUGS (1)
  1. SIMPONI [Suspect]
     Active Substance: GOLIMUMAB
     Indication: COLITIS ULCERATIVE
     Dosage: 100 MG/ML
     Route: 058
     Dates: start: 20190802

REACTIONS (5)
  - Product use issue [Unknown]
  - Fistula [Unknown]
  - Off label use [Unknown]
  - Colitis ulcerative [Unknown]
  - Epstein-Barr virus infection [Unknown]
